FAERS Safety Report 12603385 (Version 1)
Quarter: 2016Q3

REPORT INFORMATION
  Report Type: Spontaneous
  Country: US (occurrence: US)
  Receive Date: 20160728
  Receipt Date: 20160728
  Transmission Date: 20161109
  Serious: Yes (Hospitalization, Disabling, Other)
  Sender: FDA-Public Use
  Company Number: US-PFIZER INC-2015385749

PATIENT
  Age: 65 Year
  Sex: Male

DRUGS (24)
  1. TESTOSTERONE. [Suspect]
     Active Substance: TESTOSTERONE
     Dosage: UNK
     Dates: start: 20140821
  2. TESTOSTERONE CIPIONATE [Suspect]
     Active Substance: TESTOSTERONE
     Indication: HORMONE REPLACEMENT THERAPY
     Dosage: 200 MG, UNK (1 CC)
     Dates: start: 20141117
  3. TESTIM [Suspect]
     Active Substance: TESTOSTERONE
     Dosage: 1 %, DAILY
     Dates: start: 20100310
  4. TESTIM [Suspect]
     Active Substance: TESTOSTERONE
     Indication: HORMONE REPLACEMENT THERAPY
     Dosage: 1 %, DAILY
     Dates: start: 20081216, end: 20091221
  5. TESTIM [Suspect]
     Active Substance: TESTOSTERONE
     Dosage: 1 %, DAILY
     Dates: start: 20100830, end: 20101123
  6. TESTOPEL [Suspect]
     Active Substance: TESTOSTERONE
     Dosage: 750 MG, UNK (PELLETS IMPLANT)
     Dates: start: 20140123
  7. ANDRODERM [Suspect]
     Active Substance: TESTOSTERONE
     Indication: HORMONE REPLACEMENT THERAPY
     Dosage: UNK
     Dates: start: 20120526
  8. ANDRODERM [Suspect]
     Active Substance: TESTOSTERONE
     Dosage: UNK
     Dates: start: 20120530
  9. TESTOSTERONE CIPIONATE [Suspect]
     Active Substance: TESTOSTERONE
     Indication: HORMONE REPLACEMENT THERAPY
     Dosage: UNK, MONTHLY
     Dates: start: 20080418, end: 20081004
  10. ANDROGEL [Suspect]
     Active Substance: TESTOSTERONE
     Indication: HORMONE REPLACEMENT THERAPY
     Dosage: UNK, PUMP DAILY
     Dates: start: 20120711
  11. TESTOPEL [Suspect]
     Active Substance: TESTOSTERONE
     Dosage: 900 MG, UNK (PELLETS IMPLANT)
     Dates: start: 20130827
  12. ANDRODERM [Suspect]
     Active Substance: TESTOSTERONE
     Dosage: UNK
     Dates: start: 20120605
  13. ANDROGEL [Suspect]
     Active Substance: TESTOSTERONE
     Dosage: UNK, DAILY
     Dates: start: 20120822, end: 20121209
  14. TESTOPEL [Suspect]
     Active Substance: TESTOSTERONE
     Dosage: 900 MG, UNK (PELLETS IMPLANT)
     Dates: start: 20141201
  15. TESTOPEL [Suspect]
     Active Substance: TESTOSTERONE
     Dosage: 900 MG, UNK (PELLETS IMPLANT)
     Dates: start: 20140905
  16. AXIRON [Suspect]
     Active Substance: TESTOSTERONE
     Indication: HORMONE REPLACEMENT THERAPY
     Dosage: UNK, DAILY
     Dates: start: 20120525, end: 20120807
  17. TESTIM [Suspect]
     Active Substance: TESTOSTERONE
     Dosage: 1 %, DAILY
     Dates: start: 20100125, end: 20100729
  18. TESTOPEL [Suspect]
     Active Substance: TESTOSTERONE
     Dosage: 900 MG, UNK (PELLETS IMPLANT)
     Dates: start: 20140624
  19. AXIRON [Suspect]
     Active Substance: TESTOSTERONE
     Dosage: UNK, DAILY
     Dates: start: 20121126
  20. AXIRON [Suspect]
     Active Substance: TESTOSTERONE
     Dosage: UNK, DAILY
     Dates: start: 20130201
  21. TESTOPEL [Suspect]
     Active Substance: TESTOSTERONE
     Indication: HORMONE REPLACEMENT THERAPY
     Dosage: 750 MG, UNK (PELLETS IMPLANT)
     Dates: start: 20120202
  22. TESTOPEL [Suspect]
     Active Substance: TESTOSTERONE
     Dosage: 750 MG, UNK (PELLETS IMPLANT)
     Dates: start: 20130308
  23. AXIRON [Suspect]
     Active Substance: TESTOSTERONE
     Dosage: UNK, DAILY
     Dates: start: 20121206
  24. TESTOSTERONE. [Suspect]
     Active Substance: TESTOSTERONE
     Indication: HORMONE REPLACEMENT THERAPY
     Dosage: 200 MG, UNK
     Dates: start: 20140623

REACTIONS (6)
  - Disability [Unknown]
  - Impaired work ability [Unknown]
  - Memory impairment [Not Recovered/Not Resolved]
  - Aneurysm [Unknown]
  - Fatigue [Not Recovered/Not Resolved]
  - Cerebrovascular accident [Unknown]

NARRATIVE: CASE EVENT DATE: 201503
